FAERS Safety Report 6655346-3 (Version None)
Quarter: 2010Q1

REPORT INFORMATION
  Report Type: 
  Country: None (occurrence: None)
  Receive Date: 20100329
  Receipt Date: 20100317
  Transmission Date: 20100710
  Serious: Yes (Hospitalization)
  Sender: FDA-Public Use
  Company Number: PHHY2009FR51905

PATIENT
  Sex: Male

DRUGS (5)
  1. CERTICAN [Suspect]
     Indication: HEART TRANSPLANT
     Dosage: 1.5 MG, BID
     Route: 048
     Dates: start: 20071213, end: 20091106
  2. PROGRAF [Suspect]
     Indication: HEART TRANSPLANT
     Dosage: 2 MG, BID
     Dates: start: 20070228
  3. PROGRAF [Suspect]
     Dosage: UNK
     Dates: start: 20091104
  4. AIR-SHOP [Concomitant]
     Dosage: 6 COURSES
     Dates: end: 20080301
  5. THALIDOMIDE [Concomitant]

REACTIONS (7)
  - ANAL ULCER [None]
  - APHTHOUS STOMATITIS [None]
  - BEHCET'S SYNDROME [None]
  - CARCINOMA IN SITU [None]
  - DECREASED APPETITE [None]
  - ORAL DISORDER [None]
  - TONGUE DISORDER [None]
